FAERS Safety Report 12328493 (Version 1)
Quarter: 2016Q2

REPORT INFORMATION
  Report Type: Spontaneous
  Country: US (occurrence: US)
  Receive Date: 20160503
  Receipt Date: 20160503
  Transmission Date: 20160815
  Serious: No
  Sender: FDA-Public Use
  Company Number: US-BEH-2015048507

PATIENT
  Sex: Male
  Weight: 95.3 kg

DRUGS (28)
  1. HIZENTRA [Suspect]
     Active Substance: HUMAN IMMUNOGLOBULIN G
     Dates: start: 20150109, end: 20150205
  2. SAW PALMETTO [Concomitant]
     Active Substance: SAW PALMETTO
  3. OXYGEN. [Concomitant]
     Active Substance: OXYGEN
  4. ACETAMINOPHEN. [Concomitant]
     Active Substance: ACETAMINOPHEN
  5. FLONASE [Concomitant]
     Active Substance: FLUTICASONE PROPIONATE
  6. DIPHENHYDRAMINE. [Concomitant]
     Active Substance: DIPHENHYDRAMINE
  7. EPIPEN [Concomitant]
     Active Substance: EPINEPHRINE
  8. BUDESONIDE. [Concomitant]
     Active Substance: BUDESONIDE
  9. ASPIRIN. [Concomitant]
     Active Substance: ASPIRIN
  10. HIZENTRA [Suspect]
     Active Substance: HUMAN IMMUNOGLOBULIN G
     Indication: IMMUNODEFICIENCY COMMON VARIABLE
     Route: 058
     Dates: start: 20150109, end: 20150205
  11. LIDOCAINE/PRILOCAINE [Concomitant]
  12. BIOTIN [Concomitant]
     Active Substance: BIOTIN
  13. NORVASC [Concomitant]
     Active Substance: AMLODIPINE BESYLATE
  14. VITAMIN C [Concomitant]
     Active Substance: ASCORBIC ACID
  15. PROTONIX [Concomitant]
     Active Substance: PANTOPRAZOLE SODIUM
  16. LASIX [Concomitant]
     Active Substance: FUROSEMIDE
  17. LISINOPRIL. [Concomitant]
     Active Substance: LISINOPRIL
  18. ATIVAN [Concomitant]
     Active Substance: LORAZEPAM
  19. GLIPIZIDE. [Concomitant]
     Active Substance: GLIPIZIDE
  20. LIPITOR [Concomitant]
     Active Substance: ATORVASTATIN CALCIUM
  21. GLUCOPHAGE [Concomitant]
     Active Substance: METFORMIN HYDROCHLORIDE
  22. TRAZODONE [Concomitant]
     Active Substance: TRAZODONE HYDROCHLORIDE
  23. FLOMAX [Concomitant]
     Active Substance: TAMSULOSIN HYDROCHLORIDE
  24. THEO-24 ER [Concomitant]
  25. FISH OIL [Concomitant]
     Active Substance: FISH OIL
  26. NITROGLYCERIN. [Concomitant]
     Active Substance: NITROGLYCERIN
  27. POTASSIUM [Concomitant]
     Active Substance: POTASSIUM
  28. MUCINEX [Concomitant]
     Active Substance: GUAIFENESIN

REACTIONS (1)
  - Pruritus [Unknown]
